FAERS Safety Report 13564661 (Version 1)
Quarter: 2017Q2

REPORT INFORMATION
  Report Type: Spontaneous
  Country: FR (occurrence: FR)
  Receive Date: 20170519
  Receipt Date: 20170519
  Transmission Date: 20170830
  Serious: Yes (Other)
  Sender: FDA-Public Use
  Company Number: FR-CELGENEUS-FRA-20170503463

PATIENT

DRUGS (1)
  1. REVLIMID [Suspect]
     Active Substance: LENALIDOMIDE
     Indication: MYCOSIS FUNGOIDES
     Dosage: 18.75 MILLIGRAM
     Route: 048

REACTIONS (9)
  - Hypokalaemia [Unknown]
  - Hypophosphataemia [Unknown]
  - Mycosis fungoides [Unknown]
  - Hypercalcaemia [Unknown]
  - Erythema multiforme [Unknown]
  - Hyperbilirubinaemia [Unknown]
  - Pruritus [Unknown]
  - Periorbital oedema [Unknown]
  - Neutropenia [Unknown]
